FAERS Safety Report 24966517 (Version 2)
Quarter: 2025Q1

REPORT INFORMATION
  Report Type: Spontaneous
  Country: IE (occurrence: IE)
  Receive Date: 20250213
  Receipt Date: 20250215
  Transmission Date: 20250408
  Serious: Yes (Other)
  Sender: ABBVIE
  Company Number: IE-ABBVIE-6126524

PATIENT
  Age: 78 Year
  Sex: Male

DRUGS (2)
  1. VENETOCLAX [Suspect]
     Active Substance: VENETOCLAX
     Indication: Chronic lymphocytic leukaemia
     Route: 065
  2. EPCORITAMAB [Suspect]
     Active Substance: EPCORITAMAB
     Indication: Product used for unknown indication
     Route: 065

REACTIONS (4)
  - Lymphadenopathy [Recovered/Resolved]
  - General symptom [Recovered/Resolved]
  - Thrombocytopenia [Unknown]
  - Urinary tract obstruction [Unknown]
